FAERS Safety Report 6015873-9 (Version None)
Quarter: 2008Q4

REPORT INFORMATION
  Report Type: 
  Country: None (occurrence: None)
  Receive Date: 20081222
  Receipt Date: 20081219
  Transmission Date: 20090506
  Serious: Yes (Hospitalization)
  Sender: FDA-Public Use
  Company Number: A0761187A

PATIENT
  Age: 73 Year
  Sex: Female
  Weight: 71.4 kg

DRUGS (5)
  1. AVANDIA [Suspect]
     Dosage: 8MG PER DAY
     Route: 048
     Dates: start: 19990101, end: 20061125
  2. BETA BLOCKER [Concomitant]
  3. XANAX [Concomitant]
  4. WELLBUTRIN [Concomitant]
  5. PROZAC [Concomitant]

REACTIONS (1)
  - MYOCARDIAL INFARCTION [None]
